FAERS Safety Report 9938069 (Version 1)
Quarter: 2014Q1

REPORT INFORMATION
  Report Type: Spontaneous
  Country: ES (occurrence: ES)
  Receive Date: 20140303
  Receipt Date: 20140303
  Transmission Date: 20141002
  Serious: Yes (Other)
  Sender: FDA-Public Use
  Company Number: ES-VERTEX PHARMACEUTICALS INC-2014-001050

PATIENT
  Sex: 0

DRUGS (2)
  1. INCIVO [Suspect]
     Indication: HEPATITIS C
     Route: 048
  2. BOCEPREVIR [Suspect]
     Indication: HEPATITIS C

REACTIONS (3)
  - Leukopenia [Unknown]
  - Anaemia [Unknown]
  - Thrombocytopenia [Unknown]
